FAERS Safety Report 15712855 (Version 1)
Quarter: 2018Q4

REPORT INFORMATION
  Report Type: Spontaneous
  Country: US (occurrence: US)
  Receive Date: 20181212
  Receipt Date: 20181212
  Transmission Date: 20190205
  Serious: Yes (Life-Threatening, Hospitalization, Other)
  Sender: FDA-Public Use
  Company Number: US-TORRENT-00007286

PATIENT
  Age: 14 Year
  Sex: Female
  Weight: 42 kg

DRUGS (1)
  1. AMLODIPINE [Suspect]
     Active Substance: AMLODIPINE BESYLATE
     Indication: HYPERTENSION
     Dosage: INGESTION OF A MONTH^S SUPPLY OF HER HOME DOSE OF 15 MG AMLODIPINE PER DAY (APPROXIMATELY 450 MG)

REACTIONS (10)
  - Electrocardiogram QT prolonged [Recovered/Resolved]
  - Acute kidney injury [Recovering/Resolving]
  - Cardiac arrest [Recovered/Resolved]
  - Hypotension [Recovered/Resolved]
  - Toxicity to various agents [Recovering/Resolving]
  - Atrioventricular block complete [Recovered/Resolved]
  - Nodal rhythm [Recovered/Resolved]
  - Lactic acidosis [Recovering/Resolving]
  - Bradycardia [Recovered/Resolved]
  - Overdose [Recovering/Resolving]
